FAERS Safety Report 6503495-2 (Version None)
Quarter: 2009Q4

REPORT INFORMATION
  Report Type: 
  Country: None (occurrence: None)
  Receive Date: 20091217
  Receipt Date: 20091207
  Transmission Date: 20100525
  Serious: Yes (Hospitalization, Other)
  Sender: FDA-Public Use
  Company Number: DE-PFIZER INC-2009306957

PATIENT
  Age: 45 Year
  Sex: Male

DRUGS (5)
  1. CELSENTRI [Suspect]
     Indication: HIV INFECTION
     Dosage: 300 MG, 2X/DAY
     Dates: start: 20091119
  2. TRUVADA [Concomitant]
     Indication: HIV INFECTION
     Dosage: UNK
     Dates: start: 20070201
  3. METOPROLOL [Concomitant]
     Indication: ATRIAL FIBRILLATION
     Dosage: 95 MG, 1X/DAY
  4. KALIUM [Concomitant]
     Dosage: UNK
  5. MAGNESIUM [Concomitant]
     Dosage: UNK

REACTIONS (3)
  - SUPRAVENTRICULAR EXTRASYSTOLES [None]
  - VISION BLURRED [None]
  - VISUAL ACUITY REDUCED [None]
